FAERS Safety Report 6338418-2 (Version None)
Quarter: 2009Q3

REPORT INFORMATION
  Report Type: 
  Country: None (occurrence: None)
  Receive Date: 20090902
  Receipt Date: 20090826
  Transmission Date: 20100115
  Serious: Yes (Hospitalization)
  Sender: FDA-Public Use
  Company Number: JP-MERCK-0908USA04961

PATIENT
  Age: 80 Year
  Sex: Female
  Weight: 43 kg

DRUGS (12)
  1. FOSAMAX [Suspect]
     Route: 048
     Dates: start: 20060226, end: 20060710
  2. LASIX [Suspect]
     Route: 048
     Dates: start: 20050101, end: 20060521
  3. LASIX [Suspect]
     Route: 048
     Dates: start: 20060522, end: 20060710
  4. SYMMETREL [Suspect]
     Route: 048
     Dates: start: 20050101
  5. CONIEL [Concomitant]
     Route: 048
     Dates: start: 20050101, end: 20060522
  6. PEPCID RPD [Concomitant]
     Route: 048
     Dates: start: 20050101, end: 20060710
  7. ALDACTONE [Concomitant]
     Route: 048
     Dates: start: 20050101
  8. ROCALTROL [Concomitant]
     Route: 048
     Dates: start: 20050101
  9. PANALDINE [Concomitant]
     Route: 048
     Dates: start: 20050101
  10. SERMION [Concomitant]
     Route: 048
     Dates: start: 20050101
  11. FLUITRAN [Concomitant]
     Route: 048
     Dates: start: 20060226
  12. YODEL S [Concomitant]
     Route: 048

REACTIONS (3)
  - DISORIENTATION [None]
  - GAIT DISTURBANCE [None]
  - RENAL FAILURE CHRONIC [None]
